FAERS Safety Report 7173065-4 (Version None)
Quarter: 2010Q4

REPORT INFORMATION
  Report Type: 
  Country: None (occurrence: None)
  Receive Date: 20101219
  Receipt Date: 20100219
  Transmission Date: 20110411
  Serious: No
  Sender: FDA-Public Use
  Company Number: US-AMGEN-KDL394048

PATIENT

DRUGS (7)
  1. ENBREL [Suspect]
     Indication: PRODUCT USED FOR UNKNOWN INDICATION
     Dosage: 50 MG, 2 TIMES/WK
     Route: 058
  2. FUROSEMIDE [Concomitant]
     Dosage: 20 MG, UNK
  3. ATENOLOL [Concomitant]
     Dosage: 25 MG, UNK
  4. ERGOCALCIFEROL [Concomitant]
     Dosage: 1000 IU/KG, UNK
  5. CALCIUM [Concomitant]
     Dosage: UNK UNK, UNK
  6. LOVAZA [Concomitant]
     Dosage: UNK UNK, UNK
  7. MULTI-VITAMINS [Concomitant]
     Dosage: UNK UNK, UNK

REACTIONS (1)
  - FATIGUE [None]
